FAERS Safety Report 5942275-3 (Version None)
Quarter: 2008Q4

REPORT INFORMATION
  Report Type: 
  Country: None (occurrence: None)
  Receive Date: 20081105
  Receipt Date: 20081104
  Transmission Date: 20090506
  Serious: Yes (Other)
  Sender: FDA-Public Use
  Company Number: US-RB-002921-08

PATIENT
  Age: 45 Year
  Sex: Male

DRUGS (1)
  1. SUBOXONE [Suspect]
     Dosage: VARING DOSE AND FREQUENCY  FROM 6 MG - 2 MG THEN THE PATIENT STOPPED COMPLETELY
     Route: 060
     Dates: start: 20080301, end: 20080802

REACTIONS (1)
  - CONVULSION [None]
